FAERS Safety Report 10196059 (Version 2)
Quarter: 2014Q2

REPORT INFORMATION
  Report Type: Spontaneous
  Country: US (occurrence: US)
  Receive Date: 20140527
  Receipt Date: 20140527
  Transmission Date: 20141212
  Serious: No
  Sender: FDA-Public Use
  Company Number: US-PFIZER INC-2013225700

PATIENT
  Age: 50 Year
  Sex: Female

DRUGS (2)
  1. LYRICA [Suspect]
     Dosage: 225 MG, 1X/DAY (ONE DOSE Q AM)
     Route: 048
  2. LYRICA [Suspect]
     Dosage: 300 MG, 1X/DAY (ONE DOSE Q HS)
     Route: 048

REACTIONS (1)
  - Somnolence [Unknown]
